FAERS Safety Report 6080377-4 (Version None)
Quarter: 2009Q1

REPORT INFORMATION
  Report Type: 
  Country: None (occurrence: None)
  Receive Date: 20090217
  Receipt Date: 20090212
  Transmission Date: 20090719
  Serious: Yes (Hospitalization)
  Sender: FDA-Public Use
  Company Number: ES-MERCK-0902ESP00027

PATIENT
  Age: 47 Year
  Sex: Male

DRUGS (3)
  1. ISENTRESS [Suspect]
     Indication: HIV INFECTION
     Route: 048
     Dates: start: 20080605
  2. LEVEMIR [Concomitant]
     Indication: DIABETES MELLITUS
     Route: 058
  3. TRIZIVIR [Suspect]
     Indication: HIV INFECTION
     Route: 048
     Dates: start: 20080605

REACTIONS (1)
  - DIABETES MELLITUS INADEQUATE CONTROL [None]
